FAERS Safety Report 7530997-2 (Version None)
Quarter: 2011Q2

REPORT INFORMATION
  Report Type: 
  Country: None (occurrence: None)
  Receive Date: 20110608
  Receipt Date: 20110509
  Transmission Date: 20111010
  Serious: Yes (Hospitalization, Other)
  Sender: FDA-Public Use
  Company Number: US-BAYER-201039045NA

PATIENT
  Age: 39 Year
  Sex: Female
  Weight: 54.422 kg

DRUGS (7)
  1. ACETAMINOPHEN AND HYDROCODONE BITARTRATE [Concomitant]
     Dosage: UNK UNK, UNK
     Dates: start: 20060901
  2. CEPHALEXIN [Concomitant]
     Dosage: UNK UNK, UNK
  3. NAPROXEN SODIUM + PSEUDOEPHEDRINE [Concomitant]
     Dosage: UNK UNK, UNK
     Dates: start: 20060901
  4. ALPRAZOLAM [Concomitant]
     Dosage: UNK UNK, UNK
     Dates: start: 20061101
  5. CYCLOBENZAPRINE [Concomitant]
     Dosage: UNK UNK, UNK
     Dates: start: 20060901
  6. PROCHLORPERAZINE TAB [Concomitant]
     Dosage: UNK UNK, UNK
     Dates: start: 20061101
  7. YASMIN [Suspect]
     Indication: PRODUCT USED FOR UNKNOWN INDICATION
     Route: 048
     Dates: start: 20060801

REACTIONS (5)
  - CHOLELITHIASIS [None]
  - PANIC ATTACK [None]
  - CHOLECYSTITIS CHRONIC [None]
  - GALLBLADDER NON-FUNCTIONING [None]
  - ANXIETY [None]
